FAERS Safety Report 9570928 (Version 2)
Quarter: 2013Q4

REPORT INFORMATION
  Report Type: Spontaneous
  Country: US (occurrence: US)
  Receive Date: 20131001
  Receipt Date: 20131003
  Transmission Date: 20140711
  Serious: No
  Sender: FDA-Public Use
  Company Number: US-BAYER-2013-118187

PATIENT
  Sex: Female

DRUGS (4)
  1. MIDOL EXTENDED RELIEF CAPLET [Suspect]
     Indication: DYSMENORRHOEA
  2. TYLENOL [PARACETAMOL] [Suspect]
     Indication: DYSMENORRHOEA
  3. PEPPERMINT [Concomitant]
     Dosage: UNK UNK, BID
  4. LAVENDER OIL [Concomitant]
     Dosage: UNK UNK, BID

REACTIONS (1)
  - Drug ineffective [None]
